FAERS Safety Report 13670881 (Version 1)
Quarter: 2017Q2

REPORT INFORMATION
  Report Type: Spontaneous
  Country: US (occurrence: US)
  Receive Date: 20170620
  Receipt Date: 20170620
  Transmission Date: 20170830
  Serious: No
  Sender: FDA-Public Use
  Company Number: US-ROCHE-1416840

PATIENT
  Sex: Female

DRUGS (2)
  1. XELODA [Suspect]
     Active Substance: CAPECITABINE
     Indication: ANAL CANCER METASTATIC
     Dosage: ONE WEEK ON AND ONE WEEK OFF
     Route: 048
     Dates: start: 201406
  2. XELODA [Suspect]
     Active Substance: CAPECITABINE
     Dosage: EVERY OTHER WEEK
     Route: 042
     Dates: start: 2012, end: 201405

REACTIONS (11)
  - Confusional state [Unknown]
  - Paraesthesia [Unknown]
  - Weight increased [Unknown]
  - Nausea [Unknown]
  - Alopecia [Unknown]
  - Lung neoplasm malignant [Unknown]
  - Constipation [Unknown]
  - Fatigue [Unknown]
  - Abdominal pain upper [Unknown]
  - Vision blurred [Unknown]
  - Amnesia [Unknown]
